FAERS Safety Report 21971117 (Version 1)
Quarter: 2023Q1

REPORT INFORMATION
  Report Type: Spontaneous
  Country: US (occurrence: US)
  Receive Date: 20230209
  Receipt Date: 20230209
  Transmission Date: 20230417
  Serious: No
  Sender: FDA-Public Use
  Company Number: US-drreddys-SPO/USA/23/0159709

PATIENT
  Age: 74 Year
  Sex: Female

DRUGS (13)
  1. LENALIDOMIDE [Suspect]
     Active Substance: LENALIDOMIDE
     Indication: Plasma cell myeloma
     Dosage: TAKE 1 CAPSULE BY MOUTH EVERY DAY FOR 21 DAYS ON FOLLOWED BY 7 DAYS OFF
     Route: 048
     Dates: start: 20221102
  2. METOPROLOL SUCCINATE [Concomitant]
     Active Substance: METOPROLOL SUCCINATE
     Indication: Product used for unknown indication
  3. BENADRYL ALL TAB 25MG [Concomitant]
     Indication: Product used for unknown indication
  4. ACYCLOVIR [Concomitant]
     Active Substance: ACYCLOVIR
     Indication: Product used for unknown indication
  5. BUMEX TAB 0.5MG [Concomitant]
     Indication: Product used for unknown indication
  6. DICYCLOMINE CAP 10MG [Concomitant]
     Indication: Product used for unknown indication
  7. IRON TAB 28MG [Concomitant]
     Indication: Product used for unknown indication
  8. KLOR-CON 10 TBC 10MEQ [Concomitant]
     Indication: Product used for unknown indication
     Dosage: 10MEQ
  9. MULTIVITAMIN TAB [Concomitant]
     Indication: Product used for unknown indication
  10. PRAVASTATIN TAB 20MG [Concomitant]
     Indication: Product used for unknown indication
  11. TRAMADOL HCL TAB 50MG [Concomitant]
     Indication: Product used for unknown indication
  12. VITAMIN D TAB 25 MC [Concomitant]
     Indication: Product used for unknown indication
  13. WARFARIN SOD TAB 2.5MG [Concomitant]
     Indication: Product used for unknown indication

REACTIONS (2)
  - Diarrhoea [Not Recovered/Not Resolved]
  - Pruritus [Not Recovered/Not Resolved]
